FAERS Safety Report 18740012 (Version 1)
Quarter: 2021Q1

REPORT INFORMATION
  Report Type: Spontaneous
  Country: CA (occurrence: CA)
  Receive Date: 20210114
  Receipt Date: 20210114
  Transmission Date: 20210419
  Serious: Yes (Death)
  Sender: FDA-Public Use
  Company Number: CA-FRESENIUS KABI-FK202100371

PATIENT
  Age: 66 Year
  Sex: Male

DRUGS (4)
  1. DACARBAZINE. [Concomitant]
     Active Substance: DACARBAZINE
     Indication: PRODUCT USED FOR UNKNOWN INDICATION
     Dosage: DACARBAZINE FOR INJECTION BP
     Route: 065
  2. DOXORUBICIN [Concomitant]
     Active Substance: DOXORUBICIN
     Indication: PRODUCT USED FOR UNKNOWN INDICATION
     Dosage: DOXORUBICIN HYDROCHLORIDE INJECTION
     Route: 065
  3. BLEOMYCIN [Suspect]
     Active Substance: BLEOMYCIN SULFATE
     Indication: HODGKIN^S DISEASE
     Dosage: BLEOMYCIN SULPHATE FOR INJECTION USP
     Route: 065
  4. VINBLASTINE [Concomitant]
     Active Substance: VINBLASTINE
     Indication: PRODUCT USED FOR UNKNOWN INDICATION
     Dosage: VINBLASTINE SULFATE INJECTION
     Route: 065

REACTIONS (1)
  - Pulmonary toxicity [Fatal]
